FAERS Safety Report 10503210 (Version 1)
Quarter: 2014Q4

REPORT INFORMATION
  Report Type: Report from Study
  Country: BR (occurrence: BR)
  Receive Date: 20141008
  Receipt Date: 20141008
  Transmission Date: 20150528
  Serious: Yes (Hospitalization)
  Sender: FDA-Public Use
  Company Number: PHHY2014BR130780

PATIENT
  Age: 44 Year
  Sex: Female
  Weight: 79 kg

DRUGS (3)
  1. SIBUTRAMINE [Concomitant]
     Active Substance: SIBUTRAMINE
     Indication: OBESITY
  2. METFORMIN [Suspect]
     Active Substance: METFORMIN HYDROCHLORIDE
     Indication: GLUCOSE TOLERANCE IMPAIRED
     Dosage: 2 DF, DAILY
     Route: 048
  3. GALVUS [Suspect]
     Active Substance: VILDAGLIPTIN
     Indication: HYPERINSULINAEMIA
     Dosage: 50 MG, DAILY
     Route: 048

REACTIONS (3)
  - Asthmatic crisis [Unknown]
  - Cardiac asthma [Unknown]
  - Maternal exposure during pregnancy [Unknown]

NARRATIVE: CASE EVENT DATE: 201303
